FAERS Safety Report 20072717 (Version 2)
Quarter: 2021Q4

REPORT INFORMATION
  Report Type: Spontaneous
  Country: US (occurrence: None)
  Receive Date: 20211116
  Receipt Date: 20211223
  Transmission Date: 20220303
  Serious: Yes (Life-Threatening, Hospitalization, Other)
  Sender: FDA-Public Use
  Company Number: 2021A805521

PATIENT
  Age: 20280 Day
  Sex: Female
  Weight: 118.8 kg

DRUGS (2)
  1. FARXIGA [Suspect]
     Active Substance: DAPAGLIFLOZIN PROPANEDIOL
     Indication: Type 2 diabetes mellitus
     Route: 048
     Dates: start: 20211104, end: 20211107
  2. FARXIGA [Suspect]
     Active Substance: DAPAGLIFLOZIN PROPANEDIOL
     Indication: Blood glucose increased
     Route: 048
     Dates: start: 20211104, end: 20211107

REACTIONS (12)
  - Pancreatitis [Not Recovered/Not Resolved]
  - Discomfort [Unknown]
  - Renal failure [Not Recovered/Not Resolved]
  - Fluid retention [Unknown]
  - Abdominal distension [Unknown]
  - Lip swelling [Recovered/Resolved]
  - Vomiting [Recovered/Resolved]
  - Hydrothorax [Not Recovered/Not Resolved]
  - Oedematous pancreatitis [Not Recovered/Not Resolved]
  - Abdominal pain [Not Recovered/Not Resolved]
  - Drug hypersensitivity [Not Recovered/Not Resolved]
  - Hypertension [Unknown]

NARRATIVE: CASE EVENT DATE: 20211107
